FAERS Safety Report 10152799 (Version 3)
Quarter: 2014Q2

REPORT INFORMATION
  Report Type: Spontaneous
  Country: AE (occurrence: AE)
  Receive Date: 20140505
  Receipt Date: 20140520
  Transmission Date: 20141212
  Serious: Yes (Disabling, Other)
  Sender: FDA-Public Use
  Company Number: AE-PFIZER INC-2014119965

PATIENT
  Age: 50 Year
  Sex: Female
  Weight: 80 kg

DRUGS (2)
  1. DEPO-MEDROL [Suspect]
     Indication: EPICONDYLITIS
     Dosage: 80 MG, ONCE
     Route: 014
     Dates: start: 2012, end: 2012
  2. LIDOCAINE [Suspect]
     Indication: ANAESTHESIA
     Dosage: 3ML, ONCE
     Route: 014
     Dates: start: 2012, end: 2012

REACTIONS (2)
  - Hypersensitivity [Recovered/Resolved]
  - Pain [Recovered/Resolved]
